FAERS Safety Report 8435476-6 (Version None)
Quarter: 2012Q2

REPORT INFORMATION
  Report Type: 
  Country: None (occurrence: None)
  Receive Date: 20120614
  Receipt Date: 20120606
  Transmission Date: 20120825
  Serious: Yes (Life-Threatening, Hospitalization, Other)
  Sender: FDA-Public Use
  Company Number: JP-CELGENEUS-087-50794-11101761

PATIENT
  Sex: Male
  Weight: 68 kg

DRUGS (24)
  1. VIDAZA [Suspect]
     Dosage: 75 MILLIGRAM/SQ. METER
     Route: 058
     Dates: start: 20120124, end: 20120201
  2. DECADRON [Concomitant]
     Dosage: 4 MILLIGRAM
     Route: 048
     Dates: start: 20120126, end: 20120201
  3. PRIMOBOLAN-DEPOT INJ [Concomitant]
     Dosage: 15 MILLIGRAM
     Route: 048
     Dates: start: 20110530, end: 20110615
  4. MAGMITT [Concomitant]
     Route: 065
     Dates: start: 20110609, end: 20110615
  5. VIDAZA [Suspect]
     Dosage: 75 MILLIGRAM/SQ. METER
     Route: 058
     Dates: start: 20111219, end: 20111228
  6. KYTRIL [Concomitant]
     Dosage: 2 MILLIGRAM
     Route: 048
     Dates: start: 20111219, end: 20111228
  7. DECADRON [Concomitant]
     Dosage: 4 MILLIGRAM
     Route: 048
     Dates: start: 20110801, end: 20110809
  8. KYTRIL [Concomitant]
     Dosage: 2 MILLIGRAM
     Route: 048
     Dates: start: 20110530, end: 20110605
  9. AMLODIPINE [Concomitant]
     Dosage: 2.5 MILLIGRAM
     Route: 048
     Dates: start: 20110607, end: 20110616
  10. EXJADE [Concomitant]
     Route: 065
     Dates: start: 20111020
  11. DECADRON [Concomitant]
     Dosage: 4 MILLIGRAM
     Route: 048
     Dates: start: 20110530, end: 20110605
  12. KYTRIL [Concomitant]
     Dosage: 2 MILLIGRAM
     Route: 048
     Dates: start: 20120124, end: 20120201
  13. ROCALTROL [Concomitant]
     Dosage: .5 MICROGRAM
     Route: 048
     Dates: start: 20110530
  14. GLAKAY [Concomitant]
     Dosage: 45 MILLIGRAM
     Route: 048
     Dates: start: 20110530
  15. CEFMETAZOLE SODIUM [Concomitant]
     Route: 065
     Dates: start: 20110818, end: 20110826
  16. VIDAZA [Suspect]
     Dosage: 75 MILLIGRAM/SQ. METER
     Route: 058
     Dates: start: 20111107, end: 20111115
  17. PRIMOBOLAN-DEPOT INJ [Concomitant]
     Dosage: 5 MILLIGRAM
     Route: 048
     Dates: start: 20110609, end: 20110615
  18. DECADRON [Concomitant]
     Dosage: 4 MILLIGRAM
     Route: 048
     Dates: start: 20111107, end: 20111115
  19. DECADRON [Concomitant]
     Dosage: 4 MILLIGRAM
     Route: 048
     Dates: start: 20111219, end: 20111228
  20. KYTRIL [Concomitant]
     Dosage: 2 MILLIGRAM
     Route: 048
     Dates: start: 20110801, end: 20110809
  21. VIDAZA [Suspect]
     Dosage: 75 MILLIGRAM/SQ. METER
     Route: 058
     Dates: start: 20110530, end: 20110605
  22. VIDAZA [Suspect]
     Dosage: 75 MILLIGRAM/SQ. METER
     Route: 058
     Dates: start: 20110630, end: 20110706
  23. VIDAZA [Suspect]
     Dosage: 75 MILLIGRAM/SQ. METER
     Route: 058
     Dates: start: 20110801, end: 20110809
  24. KYTRIL [Concomitant]
     Dosage: 2 MILLIGRAM
     Route: 048
     Dates: start: 20111107, end: 20111115

REACTIONS (7)
  - NEUTROPHIL COUNT DECREASED [None]
  - RED BLOOD CELL COUNT DECREASED [None]
  - HYPERTENSION [None]
  - FEBRILE NEUTROPENIA [None]
  - WHITE BLOOD CELL COUNT DECREASED [None]
  - PLATELET COUNT DECREASED [None]
  - SERUM FERRITIN INCREASED [None]
